FAERS Safety Report 5898926-5 (Version None)
Quarter: 2008Q3

REPORT INFORMATION
  Report Type: 
  Country: None (occurrence: None)
  Receive Date: 20080925
  Receipt Date: 20080922
  Transmission Date: 20090109
  Serious: Yes (Death, Hospitalization)
  Sender: FDA-Public Use
  Company Number: ZA-SANOFI-SYNTHELABO-D01200503034

PATIENT
  Sex: Male
  Weight: 63 kg

DRUGS (6)
  1. ASPIRIN [Concomitant]
     Indication: ATRIAL FIBRILLATION
     Dosage: 75 MG
     Route: 048
     Dates: start: 20040127
  2. CLOPIDOGREL [Suspect]
     Indication: ATRIAL FIBRILLATION
     Route: 048
     Dates: start: 20040127
  3. EPILIM [Concomitant]
  4. PURESIS [Concomitant]
  5. DILATREND [Concomitant]
  6. DIOVAN [Concomitant]

REACTIONS (2)
  - HICCUPS [None]
  - MULTI-ORGAN FAILURE [None]
